FAERS Safety Report 5577470-9 (Version None)
Quarter: 2007Q4

REPORT INFORMATION
  Report Type: 
  Country: None (occurrence: None)
  Receive Date: 20071130
  Receipt Date: 20070927
  Transmission Date: 20080405
  Serious: No
  Sender: FDA-Public Use
  Company Number: US200709006832

PATIENT
  Age: 65 Year
  Sex: Male

DRUGS (9)
  1. BYETTA [Suspect]
     Indication: TYPE 2 DIABETES MELLITUS
     Dosage: 5 UG, 2/D, SUBCUTANEOUS ; 10 UG, 2/D, SUBCUTANEOUS
     Route: 058
     Dates: start: 20070801, end: 20070924
  2. BYETTA [Suspect]
     Indication: TYPE 2 DIABETES MELLITUS
     Dosage: 5 UG, 2/D, SUBCUTANEOUS ; 10 UG, 2/D, SUBCUTANEOUS
     Route: 058
     Dates: start: 20070925
  3. METFORMIN HCL [Concomitant]
  4. AVAPRO [Concomitant]
  5. LIPITOR [Concomitant]
  6. LYRICA [Concomitant]
  7. METHOTREXATE [Concomitant]
  8. ENBREL [Concomitant]
  9. CORTISONE ACETATE [Concomitant]

REACTIONS (4)
  - HICCUPS [None]
  - NAUSEA [None]
  - RASH [None]
  - WEIGHT DECREASED [None]
